FAERS Safety Report 6137874-2 (Version None)
Quarter: 2009Q1

REPORT INFORMATION
  Report Type: 
  Country: None (occurrence: None)
  Receive Date: 20090331
  Receipt Date: 20090325
  Transmission Date: 20090719
  Serious: Yes (Death, Other)
  Sender: FDA-Public Use
  Company Number: PHHY2009FR11411

PATIENT
  Sex: Female

DRUGS (11)
  1. SANDIMMUNE [Suspect]
     Indication: STEM CELL TRANSPLANT
     Dosage: 3300 MG/DAY
     Route: 042
     Dates: start: 20071001, end: 20071019
  2. SANDIMMUNE [Suspect]
     Indication: PROPHYLAXIS AGAINST GRAFT VERSUS HOST DISEASE
  3. CELLCEPT [Suspect]
     Indication: STEM CELL TRANSPLANT
     Dosage: 3300 MG/DAY
     Route: 042
     Dates: start: 20071009
  4. CELLCEPT [Suspect]
     Indication: PROPHYLAXIS AGAINST GRAFT VERSUS HOST DISEASE
  5. CYCLOPHOSPHAMIDE [Suspect]
     Indication: BONE MARROW CONDITIONING REGIMEN
     Dosage: 3300 MG/DAY
     Route: 042
     Dates: start: 20071004, end: 20071008
  6. FLUDARA [Suspect]
     Indication: BONE MARROW CONDITIONING REGIMEN
     Dosage: 66.25 MG/DAY
     Route: 042
     Dates: start: 20071004, end: 20071008
  7. IRRADIATION [Concomitant]
     Indication: BONE MARROW CONDITIONING REGIMEN
     Dosage: 2 GY
     Dates: start: 20071009
  8. STEROIDS NOS [Concomitant]
     Indication: STEM CELL TRANSPLANT
     Dosage: 1 MG/KG
     Dates: start: 20071019
  9. STEROIDS NOS [Concomitant]
     Indication: PROPHYLAXIS AGAINST GRAFT VERSUS HOST DISEASE
  10. NEUPOGEN [Concomitant]
     Dosage: 300 UG/DAY
     Dates: start: 20071011
  11. CLAVENTIN [Concomitant]

REACTIONS (10)
  - BLOOD CREATININE INCREASED [None]
  - CATHETER RELATED INFECTION [None]
  - COMA [None]
  - EXTENSOR PLANTAR RESPONSE [None]
  - IMMUNOSUPPRESSANT DRUG LEVEL INCREASED [None]
  - LEUKOENCEPHALOPATHY [None]
  - NERVOUS SYSTEM DISORDER [None]
  - PSEUDOMONAS INFECTION [None]
  - PYREXIA [None]
  - QUADRIPLEGIA [None]
